FAERS Safety Report 6744882-7 (Version None)
Quarter: 2010Q2

REPORT INFORMATION
  Report Type: 
  Country: None (occurrence: None)
  Receive Date: 20100527
  Receipt Date: 20100420
  Transmission Date: 20101027
  Serious: No
  Sender: FDA-Public Use
  Company Number: US-BRISTOL-MYERS SQUIBB COMPANY-15074370

PATIENT
  Age: 45 Year
  Sex: Female

DRUGS (1)
  1. ONGLYZA [Suspect]
     Route: 048

REACTIONS (5)
  - ERYTHEMA [None]
  - HEADACHE [None]
  - PRURITUS [None]
  - RASH [None]
  - SINUS DISORDER [None]
